FAERS Safety Report 7964932-X (Version None)
Quarter: 2011Q4

REPORT INFORMATION
  Report Type: 
  Country: None (occurrence: None)
  Receive Date: 20111208
  Receipt Date: 20111208
  Transmission Date: 20120403
  Serious: Yes (Hospitalization)
  Sender: FDA-Public Use
  Company Number: None

PATIENT
  Age: 46 Year
  Sex: Female

DRUGS (1)
  1. SODIUM FERRIC GLUCONATE [Suspect]
     Indication: ANAEMIA
     Route: 042
     Dates: start: 20111205, end: 20111205

REACTIONS (5)
  - UNRESPONSIVE TO STIMULI [None]
  - ARTHRALGIA [None]
  - NAUSEA [None]
  - VOMITING [None]
  - URTICARIA [None]
